FAERS Safety Report 18228463 (Version 1)
Quarter: 2020Q3

REPORT INFORMATION
  Report Type: Spontaneous
  Country: JP (occurrence: JP)
  Receive Date: 20200903
  Receipt Date: 20200903
  Transmission Date: 20201103
  Serious: Yes (Hospitalization)
  Sender: FDA-Public Use
  Company Number: JP-AMNEAL PHARMACEUTICALS-2020-AMRX-02646

PATIENT
  Age: 74 Year
  Sex: Female

DRUGS (4)
  1. LEVOLEUCOVORIN. [Suspect]
     Active Substance: LEVOLEUCOVORIN
     Indication: RECTAL CANCER STAGE III
     Dosage: 200 MILLIGRAM/SQ. METER INFUSION OVER 2 H
     Route: 065
  2. 5?FLUOROURACIL [FLUOROURACIL] [Suspect]
     Active Substance: FLUOROURACIL
     Indication: RECTAL CANCER STAGE III
     Dosage: 400 MILLIGRAM/SQ. METER, EVERY 2WK
     Route: 040
  3. 5?FLUOROURACIL [FLUOROURACIL] [Suspect]
     Active Substance: FLUOROURACIL
     Dosage: 2400 MILLIGRAM/SQ. METER 46 H INFUSION
     Route: 065
  4. OXALIPLATIN. [Suspect]
     Active Substance: OXALIPLATIN
     Indication: RECTAL CANCER STAGE III
     Dosage: 85 MILLIGRAM/SQ. METER, EVERY 2WK
     Route: 065

REACTIONS (1)
  - Interstitial lung disease [Recovered/Resolved]
